FAERS Safety Report 13508927 (Version 1)
Quarter: 2017Q2

REPORT INFORMATION
  Report Type: Spontaneous
  Country: FR (occurrence: FR)
  Receive Date: 20170503
  Receipt Date: 20170503
  Transmission Date: 20170830
  Serious: Yes (Other)
  Sender: FDA-Public Use
  Company Number: PHHY2017FR042781

PATIENT
  Age: 14 Year
  Sex: Male

DRUGS (6)
  1. URBANYL [Concomitant]
     Active Substance: CLOBAZAM
     Indication: EPILEPSY
     Dosage: 15 MG, QD
     Route: 048
     Dates: start: 20170201
  2. TEGRETOL [Suspect]
     Active Substance: CARBAMAZEPINE
     Indication: EPILEPSY
     Dosage: 200 MG, UNK
     Route: 048
     Dates: start: 20170201, end: 20170203
  3. TEGRETOL [Suspect]
     Active Substance: CARBAMAZEPINE
     Dosage: 600 MG, UNK
     Route: 048
     Dates: start: 20170207, end: 20170215
  4. TEGRETOL [Suspect]
     Active Substance: CARBAMAZEPINE
     Dosage: 400 MG, UNK
     Route: 048
     Dates: start: 20170204, end: 20170206
  5. URBANYL [Concomitant]
     Active Substance: CLOBAZAM
     Dosage: 15 MG, QD
     Route: 048
     Dates: start: 20170216
  6. URBANYL [Concomitant]
     Active Substance: CLOBAZAM
     Dosage: UNK, QD (LESS THAN 15 MG)
     Route: 048

REACTIONS (5)
  - Haematoma [Recovering/Resolving]
  - Purpura [Recovering/Resolving]
  - Leukopenia [Recovered/Resolved]
  - Petechiae [Recovering/Resolving]
  - Thrombocytopenia [Not Recovered/Not Resolved]

NARRATIVE: CASE EVENT DATE: 20170215
